FAERS Safety Report 11381927 (Version 1)
Quarter: 2015Q3

REPORT INFORMATION
  Report Type: Spontaneous
  Country: IT (occurrence: IT)
  Receive Date: 20150814
  Receipt Date: 20150814
  Transmission Date: 20151125
  Serious: Yes (Hospitalization, Other)
  Sender: FDA-Public Use
  Company Number: IT-JNJFOC-20150801685

PATIENT

DRUGS (3)
  1. REMICADE [Suspect]
     Active Substance: INFLIXIMAB
     Indication: CROHN^S DISEASE
     Dosage: 3-5 MG/KG/BODY WEIGHT AT 0, 2, 6 WEEKS AND EVERY 4 WEEKS THEREAFTER FOR A 5-YEAR PERIOD
     Route: 042
  2. REMICADE [Suspect]
     Active Substance: INFLIXIMAB
     Indication: ANKYLOSING SPONDYLITIS
     Dosage: 3-5 MG/KG/BODY WEIGHT AT 0, 2, 6 WEEKS AND EVERY 4 WEEKS THEREAFTER FOR A 5-YEAR PERIOD
     Route: 042
  3. REMICADE [Suspect]
     Active Substance: INFLIXIMAB
     Indication: UVEITIS
     Dosage: 3-5 MG/KG/BODY WEIGHT AT 0, 2, 6 WEEKS AND EVERY 4 WEEKS THEREAFTER FOR A 5-YEAR PERIOD
     Route: 042

REACTIONS (21)
  - Hypertensive crisis [Unknown]
  - Conjunctivitis [Unknown]
  - No therapeutic response [Unknown]
  - Drug ineffective [Unknown]
  - Vertigo [Unknown]
  - Tooth infection [Unknown]
  - Folliculitis [Unknown]
  - Influenza [Unknown]
  - Tachycardia [Unknown]
  - Headache [Unknown]
  - Diarrhoea [Unknown]
  - Sinusitis [Unknown]
  - Pharyngitis [Unknown]
  - Injection site reaction [Unknown]
  - Pneumonia [Unknown]
  - Urinary tract infection [Unknown]
  - Ear infection [Unknown]
  - Laryngitis [Unknown]
  - Nasopharyngitis [Unknown]
  - Bronchitis [Unknown]
  - Abdominal pain [Unknown]
